FAERS Safety Report 22086021 (Version 2)
Quarter: 2023Q4

REPORT INFORMATION
  Report Type: Spontaneous
  Country: AU (occurrence: AU)
  Receive Date: 20230310
  Receipt Date: 20231206
  Transmission Date: 20240110
  Serious: Yes (Disabling)
  Sender: FDA-Public Use
  Company Number: AU-BAUSCHBL-2023BNL001890

PATIENT
  Sex: Female

DRUGS (9)
  1. PREDNISOLONE [Suspect]
     Active Substance: PREDNISOLONE
     Indication: Hidradenitis
     Route: 065
  2. ADALIMUMAB [Suspect]
     Active Substance: ADALIMUMAB\ISOPROPYL ALCOHOL
     Indication: Hidradenitis
     Route: 065
  3. ADALIMUMAB [Suspect]
     Active Substance: ADALIMUMAB\ISOPROPYL ALCOHOL
     Route: 065
  4. SECUKINUMAB [Suspect]
     Active Substance: SECUKINUMAB
     Indication: Hidradenitis
     Dosage: 1 MONTH
     Route: 065
  5. METHOTREXATE [Suspect]
     Active Substance: METHOTREXATE
     Indication: Hidradenitis
     Route: 065
  6. SPIRONOLACTONE [Suspect]
     Active Substance: SPIRONOLACTONE
     Indication: Hidradenitis
     Route: 065
  7. HYRIMOZ (ADALIMUMAB) [Concomitant]
     Indication: Hidradenitis
     Dosage: PRE-FILLED SYRINGE+X100L
  8. HYRIMOZ (ADALIMUMAB) [Concomitant]
  9. COSENTYX [Concomitant]
     Active Substance: SECUKINUMAB
     Indication: Hidradenitis
     Dosage: PRE-FILLED SYRINGE

REACTIONS (4)
  - Condition aggravated [Unknown]
  - Hidradenitis [Unknown]
  - Treatment failure [Unknown]
  - Product use in unapproved indication [Unknown]
